FAERS Safety Report 20181884 (Version 1)
Quarter: 2021Q4

REPORT INFORMATION
  Report Type: Report from Study
  Country: CA (occurrence: CA)
  Receive Date: 20211214
  Receipt Date: 20211214
  Transmission Date: 20220303
  Serious: Yes (Other)
  Sender: FDA-Public Use
  Company Number: CA-TAKEDA-2021TUS056738

PATIENT
  Age: 26 Year
  Sex: Female

DRUGS (5)
  1. VEDOLIZUMAB [Suspect]
     Active Substance: VEDOLIZUMAB
     Indication: Colitis ulcerative
     Dosage: 300 MILLIGRAM
     Route: 042
     Dates: start: 20210601
  2. VEDOLIZUMAB [Suspect]
     Active Substance: VEDOLIZUMAB
     Dosage: 300 MILLIGRAM
     Route: 042
  3. PENTASA [Concomitant]
     Active Substance: MESALAMINE
     Dosage: UNK
     Dates: start: 202009
  4. ENTOCORT [Concomitant]
     Active Substance: BUDESONIDE
     Dosage: UNK
     Dates: start: 202109
  5. ZOMIG [Concomitant]
     Active Substance: ZOLMITRIPTAN
     Dosage: UNK

REACTIONS (3)
  - Colitis ulcerative [Not Recovered/Not Resolved]
  - Gastroenteritis viral [Unknown]
  - Food poisoning [Unknown]

NARRATIVE: CASE EVENT DATE: 20210909
